FAERS Safety Report 7248918-9 (Version None)
Quarter: 2011Q1

REPORT INFORMATION
  Report Type: 
  Country: None (occurrence: None)
  Receive Date: 20110128
  Receipt Date: 20100712
  Transmission Date: 20110831
  Serious: Yes (Hospitalization, Other)
  Sender: FDA-Public Use
  Company Number: US-BAYER-201022428NA

PATIENT
  Sex: Female
  Weight: 119.96 kg

DRUGS (4)
  1. YAZ [Suspect]
     Indication: DYSMENORRHOEA
  2. YAZ [Suspect]
     Indication: PREMENSTRUAL SYNDROME
  3. YAZ [Suspect]
     Indication: ORAL CONTRACEPTION
     Dosage: UNK UNK, QD
     Route: 048
     Dates: start: 20060811, end: 20070506
  4. YAZ [Suspect]

REACTIONS (4)
  - DYSPNOEA EXERTIONAL [None]
  - PLEURITIC PAIN [None]
  - PULMONARY EMBOLISM [None]
  - DYSPNOEA [None]
